FAERS Safety Report 16350345 (Version 2)
Quarter: 2019Q2

REPORT INFORMATION
  Report Type: Spontaneous
  Country: US (occurrence: US)
  Receive Date: 20190524
  Receipt Date: 20190529
  Transmission Date: 20190711
  Serious: Yes (Life-Threatening, Hospitalization, Other)
  Sender: FDA-Public Use
  Company Number: US-DRREDDYS-USA/USA/19/0110500

PATIENT
  Age: 38 Year
  Sex: Female

DRUGS (4)
  1. EVEROLIMUS. [Suspect]
     Active Substance: EVEROLIMUS
     Indication: IMMUNOSUPPRESSION
  2. CYCLOSPORIN [Suspect]
     Active Substance: CYCLOSPORINE
     Indication: IMMUNOSUPPRESSION
  3. RITUXIMAB. [Concomitant]
     Active Substance: RITUXIMAB
     Indication: TRANSPLANT REJECTION
  4. TACROLIMUS. [Suspect]
     Active Substance: TACROLIMUS
     Indication: IMMUNOSUPPRESSION

REACTIONS (12)
  - Hyponatraemia [Unknown]
  - Coma [Recovering/Resolving]
  - Posterior reversible encephalopathy syndrome [Recovering/Resolving]
  - Blood urea increased [Unknown]
  - Gaze palsy [Recovering/Resolving]
  - Hydrocephalus [Recovering/Resolving]
  - Pupil fixed [Recovering/Resolving]
  - Delirium [Recovering/Resolving]
  - Intracranial mass [Recovering/Resolving]
  - Vasogenic cerebral oedema [Recovering/Resolving]
  - Neurotoxicity [Recovering/Resolving]
  - Status epilepticus [Recovering/Resolving]
